FAERS Safety Report 9331859 (Version 2)
Quarter: 2013Q3

REPORT INFORMATION
  Report Type: Spontaneous
  Country: US (occurrence: None)
  Receive Date: 20130603
  Receipt Date: 20130723
  Transmission Date: 20140515
  Serious: Yes (Hospitalization)
  Sender: FDA-Public Use
  Company Number: 2013US001657

PATIENT
  Age: 33 Year
  Sex: Male
  Weight: 91 kg

DRUGS (7)
  1. ICLUSIG [Suspect]
     Indication: CHRONIC MYELOID LEUKAEMIA
     Route: 048
  2. PROTONIX (PANTOPRAZOLE SODIUM SESQUIHYDRATE) [Concomitant]
  3. OXYCODONE (OXYCODONE) [Concomitant]
  4. VALTREX (VALACICLOVIR HYDROCHLORIDE) [Concomitant]
  5. ALLOPURINOL [Concomitant]
  6. LYRICA (PREGABALIN) [Concomitant]
  7. OXYCONTIN (OXYCODONE HYDROCHLORIDE) [Concomitant]

REACTIONS (3)
  - Splenomegaly [None]
  - Staphylococcal infection [None]
  - Abdominal pain upper [None]
